FAERS Safety Report 8795570 (Version 1)
Quarter: 2012Q4

REPORT INFORMATION
  Report Type: 
  Country: SE (occurrence: SE)
  Receive Date: 20120917
  Receipt Date: 20120917
  Transmission Date: 20130627
  Serious: Yes (Other)
  Sender: FDA-Public Use
  Company Number: SE-ASTRAZENECA-2012SE70415

PATIENT
  Age: 17115 Day
  Sex: Female

DRUGS (5)
  1. SEROQUEL DEPOT [Suspect]
     Route: 048
     Dates: start: 20111026, end: 20120625
  2. OMEPRAZOL [Concomitant]
  3. ATARAX [Concomitant]
  4. LEVAXIN [Concomitant]
     Route: 048
  5. LITHIONIT [Concomitant]
     Route: 048

REACTIONS (1)
  - Urinary retention [Recovered/Resolved]
